FAERS Safety Report 5072177-9 (Version None)
Quarter: 2006Q3

REPORT INFORMATION
  Report Type: 
  Country: None (occurrence: None)
  Receive Date: 20060801
  Receipt Date: 20060720
  Transmission Date: 20061208
  Serious: Yes (Other)
  Sender: FDA-Public Use
  Company Number: 2006089585

PATIENT
  Age: 3 Year
  Sex: Male
  Weight: 14.0615 kg

DRUGS (1)
  1. DEPO-PROVERA [Suspect]
     Indication: DRUG USE FOR UNKNOWN INDICATION
     Dosage: (SINGLE INJECTION)
     Dates: start: 19980101, end: 19980101

REACTIONS (7)
  - ACCIDENTAL EXPOSURE [None]
  - CAESAREAN SECTION [None]
  - CONGENITAL URETHRAL ANOMALY [None]
  - DRUG EXPOSURE DURING PREGNANCY [None]
  - SEASONAL ALLERGY [None]
  - SPEECH DISORDER [None]
  - WRONG DRUG ADMINISTERED [None]
